FAERS Safety Report 13056076 (Version 2)
Quarter: 2017Q1

REPORT INFORMATION
  Report Type: Spontaneous
  Country: FI (occurrence: FI)
  Receive Date: 20161222
  Receipt Date: 20170120
  Transmission Date: 20170428
  Serious: Yes (Other)
  Sender: FDA-Public Use
  Company Number: FI-ELI_LILLY_AND_COMPANY-FI201612005217

PATIENT
  Age: 56 Year
  Sex: Male

DRUGS (6)
  1. KETIPINOR [Concomitant]
     Active Substance: QUETIAPINE FUMARATE
     Dosage: 75 MG, UNKNOWN
     Route: 048
  2. ZYPADHERA [Suspect]
     Active Substance: OLANZAPINE PAMOATE
     Indication: BIPOLAR DISORDER
     Dosage: 300 MG, 2/M
     Route: 030
     Dates: start: 201607
  3. LAMICTAL [Concomitant]
     Active Substance: LAMOTRIGINE
     Dosage: 50 MG, UNK
     Route: 048
  4. TENOX                              /00393701/ [Concomitant]
     Dosage: 20 MG, UNKNOWN
     Route: 048
  5. LITO [Concomitant]
     Active Substance: LITHIUM CARBONATE
     Dosage: 750 MG, QD
     Route: 048
  6. ANTABUS [Concomitant]
     Active Substance: DISULFIRAM
     Dosage: 200 MG, EACH MORNING
     Route: 048

REACTIONS (3)
  - Fatigue [Unknown]
  - Feeling drunk [Unknown]
  - Somnolence [Unknown]
